FAERS Safety Report 25961406 (Version 2)
Quarter: 2025Q4

REPORT INFORMATION
  Report Type: Spontaneous
  Country: JP (occurrence: JP)
  Receive Date: 20251027
  Receipt Date: 20251117
  Transmission Date: 20260117
  Serious: Yes (Life-Threatening, Hospitalization)
  Sender: ASTELLAS
  Company Number: JP-ASTELLAS-2025-AER-058908

PATIENT
  Age: 84 Year
  Sex: Male

DRUGS (14)
  1. XTANDI [Suspect]
     Active Substance: ENZALUTAMIDE
     Indication: Prostate cancer
     Route: 048
     Dates: start: 20251006, end: 202510
  2. Nateglinide 90mg [Concomitant]
     Indication: Product used for unknown indication
     Route: 065
  3. JARDIANCE [Concomitant]
     Active Substance: EMPAGLIFLOZIN
     Indication: Product used for unknown indication
     Route: 065
  4. Azosemide table 30mg [Concomitant]
     Indication: Product used for unknown indication
     Dosage: HALF T
     Route: 065
  5. Nifedipine controlled release preparation 20mg [Concomitant]
     Indication: Product used for unknown indication
     Route: 065
  6. Halfdigoxin 0.125mg [Concomitant]
     Indication: Product used for unknown indication
     Route: 065
  7. ASPIRIN [Concomitant]
     Active Substance: ASPIRIN
     Indication: Product used for unknown indication
     Route: 065
  8. Pitavastatin OD 2mg [Concomitant]
     Indication: Product used for unknown indication
     Route: 065
  9. LANSOPRAZOLE [Concomitant]
     Active Substance: LANSOPRAZOLE
     Indication: Product used for unknown indication
     Route: 065
  10. Magnesium Oxide Tablet 330mg [Concomitant]
     Indication: Product used for unknown indication
     Route: 065
  11. Dayvigo 5mg [Concomitant]
     Indication: Product used for unknown indication
     Route: 065
  12. TRULICITY Subcutaneous Injection 0.75mg [Concomitant]
     Indication: Product used for unknown indication
     Route: 065
  13. Warfarin 1mg [Concomitant]
     Indication: Product used for unknown indication
     Route: 065
  14. Beova 50mg [Concomitant]
     Indication: Product used for unknown indication
     Route: 065
     Dates: start: 20250901

REACTIONS (1)
  - Stevens-Johnson syndrome [Not Recovered/Not Resolved]

NARRATIVE: CASE EVENT DATE: 20251013
